FAERS Safety Report 6323678-4 (Version None)
Quarter: 2009Q3

REPORT INFORMATION
  Report Type: 
  Country: None (occurrence: None)
  Receive Date: 20090818
  Receipt Date: 20090403
  Transmission Date: 20100115
  Serious: Yes (Hospitalization)
  Sender: FDA-Public Use
  Company Number: MEDI-0008217

PATIENT
  Age: 11 Month
  Sex: Female
  Weight: 7.91 kg

DRUGS (2)
  1. SYNAGIS [Suspect]
     Indication: PREMATURE BABY
     Dosage: 115 MG, 1 IN 1 M, INTRAMUSCULAR
     Route: 030
     Dates: start: 20081204, end: 20090227
  2. COLACE(DOCUSATE SODIUM) [Concomitant]

REACTIONS (1)
  - RESPIRATORY SYNCYTIAL VIRUS INFECTION [None]
